FAERS Safety Report 4475118-8 (Version None)
Quarter: 2004Q4

REPORT INFORMATION
  Report Type: 
  Country: None (occurrence: None)
  Receive Date: 20041015
  Receipt Date: 20041008
  Transmission Date: 20050328
  Serious: Yes (Other)
  Sender: FDA-Public Use
  Company Number: PHBS2004JP13543

PATIENT
  Age: 60 Year
  Sex: Male

DRUGS (1)
  1. AREDIA [Suspect]
     Indication: METASTASES TO BONE
     Dosage: 45 MG/2 WEEKS
     Route: 042

REACTIONS (3)
  - COGNITIVE DISORDER [None]
  - DELIRIUM [None]
  - HALLUCINATION [None]
